FAERS Safety Report 11112263 (Version 8)
Quarter: 2018Q2

REPORT INFORMATION
  Report Type: Spontaneous
  Country: US (occurrence: US)
  Receive Date: 20150514
  Receipt Date: 20180420
  Transmission Date: 20180711
  Serious: Yes (Hospitalization, Other)
  Sender: FDA-Public Use
  Company Number: US-PFIZER INC-2015158737

PATIENT
  Age: 82 Year
  Sex: Female

DRUGS (11)
  1. REVATIO [Suspect]
     Active Substance: SILDENAFIL CITRATE
     Indication: PULMONARY HYPERTENSION
     Dosage: 20 MG, 3X/DAY (AFTER BREAKFAST, AFTER LUNCH, AND AFTER DINNER)
     Dates: start: 2008
  2. IRON [Concomitant]
     Active Substance: IRON
     Dosage: UNK, 3XDAY (AFTER BREAKFAST, AFTER LUNCH , AFTER DINNER)
  3. SPIRONOLACTONE. [Concomitant]
     Active Substance: SPIRONOLACTONE
     Dosage: 0.25 PILL AFTER LUNCH
  4. REVATIO [Suspect]
     Active Substance: SILDENAFIL CITRATE
     Indication: CARDIAC DISORDER
  5. LISINOPRIL. [Concomitant]
     Active Substance: LISINOPRIL
     Dosage: UNK, 1X/DAY (AFTER BREAKFAST)
  6. PRILOSEC [Concomitant]
     Active Substance: OMEPRAZOLE MAGNESIUM
     Dosage: UNK
  7. AMLODIPINE [Concomitant]
     Active Substance: AMLODIPINE BESYLATE
     Dosage: 5 MG, UNK
  8. LOSARTAN. [Concomitant]
     Active Substance: LOSARTAN
     Dosage: 50 MG, UNK
  9. XARELTO [Concomitant]
     Active Substance: RIVAROXABAN
     Dosage: 20 MG, 1X/DAY (AFTER DINNER)
  10. STOOL SOFTENER (DOCUSATE) [Concomitant]
     Active Substance: DOCUSATE
     Dosage: UNK, 3X/DAY (AFTER BREAKFAST, AFTER LUNCH, AND AFTER DINNER)
  11. METOPROLOL. [Concomitant]
     Active Substance: METOPROLOL
     Dosage: UNK, 1X/DAY (BEDTIME)

REACTIONS (2)
  - Deafness [Unknown]
  - Hypoacusis [Recovered/Resolved]

NARRATIVE: CASE EVENT DATE: 2011
